FAERS Safety Report 8815561 (Version 1)
Quarter: 2012Q4

REPORT INFORMATION
  Report Type: 
  Country: IT (occurrence: IT)
  Receive Date: 20120928
  Receipt Date: 20120928
  Transmission Date: 20130627
  Serious: Yes (Hospitalization)
  Sender: FDA-Public Use
  Company Number: PHHY2012IT082549

PATIENT
  Age: 55 Year
  Sex: Female

DRUGS (2)
  1. OXALIPLATIN [Suspect]
     Route: 042
  2. XELODA [Suspect]
     Dosage: 1650 mg, BID
     Route: 048

REACTIONS (10)
  - Left ventricular failure [Recovered/Resolved]
  - Myopathy toxic [Recovered/Resolved]
  - Muscular weakness [Recovered/Resolved]
  - Asthenia [Recovered/Resolved]
  - Fatigue [Recovered/Resolved]
  - Demyelinating polyneuropathy [Recovered/Resolved]
  - Peripheral sensory neuropathy [Recovered/Resolved]
  - Paraesthesia [Recovered/Resolved]
  - Dysaesthesia [Recovered/Resolved]
  - Decreased appetite [Recovered/Resolved]
